FAERS Safety Report 8514569-9 (Version None)
Quarter: 2012Q3

REPORT INFORMATION
  Report Type: 
  Country: None (occurrence: None)
  Receive Date: 20120717
  Receipt Date: 20120708
  Transmission Date: 20120928
  Serious: No
  Sender: FDA-Public Use
  Company Number: US-BAYER-2012-069551

PATIENT

DRUGS (3)
  1. LORTAB [Concomitant]
  2. ALEVE (CAPLET) [Suspect]
     Indication: HEADACHE
     Route: 048
  3. ALEVE (CAPLET) [Suspect]
     Indication: PAIN IN JAW

REACTIONS (2)
  - HEADACHE [None]
  - PAIN IN JAW [None]
